FAERS Safety Report 11093803 (Version 1)
Quarter: 2015Q2

REPORT INFORMATION
  Report Type: Other
  Country: JP (occurrence: JP)
  Receive Date: 20150506
  Receipt Date: 20150506
  Transmission Date: 20150821
  Serious: Yes (Death, Hospitalization)
  Sender: FDA-Public Use
  Company Number: JP-ACTELION-A-CH2015-117125

PATIENT
  Age: 77 Year
  Sex: Female

DRUGS (2)
  1. AMBRISENTAN [Suspect]
     Active Substance: AMBRISENTAN
     Indication: PULMONARY ARTERIAL HYPERTENSION
     Route: 065
  2. TRACLEER [Suspect]
     Active Substance: BOSENTAN\BOSENTAN MONOHYDRATE
     Indication: PULMONARY ARTERIAL HYPERTENSION
     Route: 048

REACTIONS (20)
  - Oxygen saturation decreased [Fatal]
  - Generalised oedema [Unknown]
  - Orthopnoea [Fatal]
  - Renal failure [Fatal]
  - Blood pressure systolic increased [Unknown]
  - Multi-organ failure [Fatal]
  - Skin necrosis [Unknown]
  - Pulmonary arterial hypertension [Unknown]
  - Haemoglobin decreased [Unknown]
  - Hyperkalaemia [Fatal]
  - Respiratory failure [Fatal]
  - Fat embolism [Fatal]
  - Scleroderma renal crisis [Unknown]
  - Skin ulcer [Unknown]
  - Anaemia [Unknown]
  - Malignant hypertension [Unknown]
  - Bronchiectasis [Unknown]
  - Systemic sclerosis [Unknown]
  - Raynaud^s phenomenon [Unknown]
  - Interstitial lung disease [Unknown]
